FAERS Safety Report 5224828-3 (Version None)
Quarter: 2007Q1

REPORT INFORMATION
  Report Type: 
  Country: None (occurrence: None)
  Receive Date: 20070126
  Receipt Date: 20070112
  Transmission Date: 20070707
  Serious: Yes (Hospitalization)
  Sender: FDA-Public Use
  Company Number: 07-001

PATIENT
  Age: 82 Year
  Sex: Male

DRUGS (2)
  1. CETACAINE SPRAY TOPICAL, CETYLITE IND., INC. [Suspect]
     Indication: BRONCHOSCOPY
     Dosage: 2-4 SPRAYS - CODE 060
     Dates: start: 20061204
  2. XYLOCAINE [Concomitant]

REACTIONS (5)
  - BRONCHITIS CHRONIC [None]
  - COUGH [None]
  - DEHYDRATION [None]
  - LARYNGEAL OEDEMA [None]
  - ORAL INTAKE REDUCED [None]
